FAERS Safety Report 5054581-8 (Version None)
Quarter: 2006Q2

REPORT INFORMATION
  Report Type: 
  Country: None (occurrence: None)
  Receive Date: 20060616
  Receipt Date: 20060405
  Transmission Date: 20061013
  Serious: No
  Sender: FDA-Public Use
  Company Number: 2006US000779

PATIENT
  Age: 68 Year
  Sex: Male

DRUGS (3)
  1. VESICARE [Suspect]
     Dosage: 5 MG, UID/QD, ORAL
     Route: 048
  2. METOPROLOL TARTRATE [Concomitant]
  3. ALEVE [Concomitant]

REACTIONS (1)
  - ARTHRITIS [None]
